FAERS Safety Report 22283553 (Version 1)
Quarter: 2023Q2

REPORT INFORMATION
  Report Type: Spontaneous
  Country: AE (occurrence: None)
  Receive Date: 20230503
  Receipt Date: 20230503
  Transmission Date: 20230722
  Serious: Yes (Congenital Anomaly)
  Sender: FDA-Public Use
  Company Number: None

PATIENT
  Age: 38 Year
  Sex: Female
  Weight: 66 kg

DRUGS (1)
  1. STELARA [Suspect]
     Active Substance: USTEKINUMAB

REACTIONS (5)
  - Pregnancy [None]
  - Drug exposure before pregnancy [None]
  - Exomphalos [None]
  - Heart disease congenital [None]
  - Foetal death [None]

NARRATIVE: CASE EVENT DATE: 20230205
